FAERS Safety Report 16750183 (Version 1)
Quarter: 2019Q4

REPORT INFORMATION
  Report Type: Spontaneous
  Country: US (occurrence: US)
  Receive Date: 20190827
  Receipt Date: 20190827
  Transmission Date: 20200122
  Serious: Yes (Life-Threatening, Hospitalization)
  Sender: FDA-Public Use
  Company Number: None

PATIENT
  Age: 59 Year
  Sex: Male
  Weight: 73.9 kg

DRUGS (3)
  1. METFORMIN [Concomitant]
     Active Substance: METFORMIN HYDROCHLORIDE
  2. JARDIANCE [Suspect]
     Active Substance: EMPAGLIFLOZIN
     Indication: TYPE 2 DIABETES MELLITUS
     Route: 048
  3. ACTOS [Concomitant]
     Active Substance: PIOGLITAZONE HYDROCHLORIDE

REACTIONS (9)
  - Blood creatinine increased [None]
  - Blood pH decreased [None]
  - Nausea [None]
  - Vomiting [None]
  - Diabetic ketoacidosis [None]
  - Respiratory distress [None]
  - Blood glucose increased [None]
  - Asthenia [None]
  - Respiratory rate increased [None]

NARRATIVE: CASE EVENT DATE: 20190727
